FAERS Safety Report 8598430-X (Version None)
Quarter: 2012Q3

REPORT INFORMATION
  Report Type: 
  Country: None (occurrence: None)
  Receive Date: 20120816
  Receipt Date: 20120808
  Transmission Date: 20120928
  Serious: Yes (Hospitalization, Other)
  Sender: FDA-Public Use
  Company Number: US-ROCHE-1076483

PATIENT
  Sex: Male

DRUGS (2)
  1. COPEGUS [Suspect]
     Indication: HEPATITIS C
     Dosage: ZYDUS PHARMACEUTICAL
     Dates: start: 20120522
  2. PEGASYS [Suspect]
     Indication: HEPATITIS C
     Dosage: PROCLICK AUTOINJECTOR
     Route: 058
     Dates: start: 20120522

REACTIONS (7)
  - COAGULOPATHY [None]
  - PULMONARY THROMBOSIS [None]
  - DECREASED APPETITE [None]
  - ANAEMIA [None]
  - FACTOR V DEFICIENCY [None]
  - DYSGEUSIA [None]
  - DYSPNOEA [None]
